FAERS Safety Report 5369790-8 (Version None)
Quarter: 2007Q2

REPORT INFORMATION
  Report Type: 
  Country: None (occurrence: None)
  Receive Date: 20070625
  Receipt Date: 20070618
  Transmission Date: 20071010
  Serious: Yes (Hospitalization)
  Sender: FDA-Public Use
  Company Number: US-ABBOTT-07P-163-0371924-00

PATIENT
  Sex: Female
  Weight: 49.032 kg

DRUGS (8)
  1. HUMIRA [Suspect]
     Indication: RHEUMATOID ARTHRITIS
     Dosage: PFS
     Route: 058
     Dates: start: 20030101, end: 20050201
  2. HUMIRA [Suspect]
     Dosage: PEN
     Route: 058
     Dates: start: 20061101, end: 20070401
  3. HUMIRA [Suspect]
     Dosage: PEN
     Route: 058
     Dates: start: 20070501
  4. PREDNISONE TAB [Suspect]
     Indication: RHEUMATOID ARTHRITIS
  5. ESOMEPRAZOLE MAGNESIUM [Concomitant]
     Indication: DRUG USE FOR UNKNOWN INDICATION
  6. SUCRALFATE [Concomitant]
     Indication: DRUG USE FOR UNKNOWN INDICATION
  7. CELECOXIB [Concomitant]
     Indication: RHEUMATOID ARTHRITIS
  8. FLUCONAZOLE [Concomitant]
     Indication: MENINGITIS CRYPTOCOCCAL

REACTIONS (3)
  - INTERVERTEBRAL DISC DEGENERATION [None]
  - MENINGITIS CRYPTOCOCCAL [None]
  - RASH PRURITIC [None]
